FAERS Safety Report 16440510 (Version 1)
Quarter: 2019Q2

REPORT INFORMATION
  Report Type: Spontaneous
  Country: US (occurrence: US)
  Receive Date: 20190617
  Receipt Date: 20190617
  Transmission Date: 20190711
  Serious: No
  Sender: FDA-Public Use
  Company Number: US-009507513-1906USA001359

PATIENT
  Sex: Female

DRUGS (2)
  1. NEXPLANON [Suspect]
     Active Substance: ETONOGESTREL
     Dosage: 1 IMPLANT, UNK
     Route: 059
  2. NEXPLANON [Suspect]
     Active Substance: ETONOGESTREL
     Indication: CONTRACEPTION
     Dosage: 1 IMPLANT, UNK
     Route: 059

REACTIONS (5)
  - Pain in extremity [Not Recovered/Not Resolved]
  - Implant site pain [Not Recovered/Not Resolved]
  - Implant site paraesthesia [Not Recovered/Not Resolved]
  - Limb discomfort [Not Recovered/Not Resolved]
  - Neuralgia [Not Recovered/Not Resolved]
